FAERS Safety Report 25654714 (Version 1)
Quarter: 2025Q3

REPORT INFORMATION
  Report Type: Spontaneous
  Country: CN (occurrence: CN)
  Receive Date: 20250807
  Receipt Date: 20250807
  Transmission Date: 20251020
  Serious: Yes (Other)
  Sender: RANBAXY
  Company Number: CN-SUN PHARMACEUTICAL INDUSTRIES LTD-2025R1-521391

PATIENT
  Age: 14 Year
  Sex: Male

DRUGS (3)
  1. OLANZAPINE [Suspect]
     Active Substance: OLANZAPINE
     Indication: Psychotic symptom
     Dosage: 10 MILLIGRAM
     Route: 065
     Dates: start: 20240116
  2. VALPROIC ACID [Suspect]
     Active Substance: VALPROIC ACID
     Indication: Mood swings
     Dosage: 1 GRAM, DAILY
     Route: 065
     Dates: start: 20240116
  3. VALPROIC ACID [Suspect]
     Active Substance: VALPROIC ACID
     Dosage: 0.5 GRAM, QD
     Route: 065
     Dates: start: 20240131

REACTIONS (2)
  - Somnolence [Unknown]
  - Blood calcium decreased [Unknown]
